FAERS Safety Report 10929667 (Version 3)
Quarter: 2016Q2

REPORT INFORMATION
  Report Type: Spontaneous
  Country: DK (occurrence: DK)
  Receive Date: 20150319
  Receipt Date: 20160531
  Transmission Date: 20160815
  Serious: Yes (Hospitalization, Other)
  Sender: FDA-Public Use
  Company Number: DK-PFIZER INC-2015093275

PATIENT
  Age: 32 Year
  Sex: Male

DRUGS (2)
  1. DEPO-MEDROL [Suspect]
     Active Substance: METHYLPREDNISOLONE ACETATE
     Dosage: 80 MG, SINGLE
     Dates: start: 20111026, end: 20111026
  2. DEPO-MEDROL [Suspect]
     Active Substance: METHYLPREDNISOLONE ACETATE
     Indication: ARTHRALGIA
     Dosage: 80 MG, SINGLE
     Dates: start: 20110912, end: 20110912

REACTIONS (8)
  - Mobility decreased [Not Recovered/Not Resolved]
  - Pain in extremity [Recovering/Resolving]
  - Muscular weakness [Recovering/Resolving]
  - Tendon rupture [Not Recovered/Not Resolved]
  - Malaise [Recovered/Resolved]
  - Muscle fatigue [Recovering/Resolving]
  - Tendon disorder [Recovered/Resolved]
  - Chondropathy [Unknown]

NARRATIVE: CASE EVENT DATE: 20111026
